FAERS Safety Report 7284791-0 (Version None)
Quarter: 2011Q1

REPORT INFORMATION
  Report Type: 
  Country: None (occurrence: None)
  Receive Date: 20110210
  Receipt Date: 20110204
  Transmission Date: 20110831
  Serious: No
  Sender: FDA-Public Use
  Company Number: US-PFIZER INC-2011000985

PATIENT
  Sex: Female

DRUGS (2)
  1. TOVIAZ [Suspect]
     Dosage: 4 MG, EVERY OTHER DAY
  2. TOVIAZ [Suspect]
     Dosage: 4 MG, 1X/DAY

REACTIONS (3)
  - VISION BLURRED [None]
  - DRUG INEFFECTIVE [None]
  - SOMNOLENCE [None]
